FAERS Safety Report 10677585 (Version 5)
Quarter: 2015Q1

REPORT INFORMATION
  Report Type: Report from Study
  Country: DE (occurrence: DE)
  Receive Date: 20141228
  Receipt Date: 20150212
  Transmission Date: 20150720
  Serious: Yes (Death, Hospitalization)
  Sender: FDA-Public Use
  Company Number: DE-AMGEN-DEUCT2014100645

PATIENT
  Age: 75 Year
  Sex: Male
  Weight: 68.4 kg

DRUGS (27)
  1. METHOTREXATE (METHOTREXATE SODIUM) [Concomitant]
     Active Substance: METHOTREXATE SODIUM
     Dosage: 12 MG, UNK
     Route: 037
     Dates: start: 20141212, end: 20150105
  2. CLEXANE [Concomitant]
     Active Substance: ENOXAPARIN SODIUM
     Dosage: 0.2 ML, UNK
     Route: 058
     Dates: start: 20141212, end: 20141218
  3. MERONEM [Concomitant]
     Active Substance: MEROPENEM
     Dosage: 1 G, UNK
     Route: 042
     Dates: start: 20141217, end: 20141230
  4. VALACICLOVIR [Concomitant]
     Active Substance: VALACYCLOVIR HYDROCHLORIDE
     Dosage: 500 MG, UNK
     Route: 048
     Dates: start: 20141105, end: 20150107
  5. DEXAMETHASONE. [Concomitant]
     Active Substance: DEXAMETHASONE
     Dosage: 4-20 MG, UNK
     Route: 037
     Dates: start: 20141212, end: 20150105
  6. PARACETAMOL [Concomitant]
     Active Substance: ACETAMINOPHEN
     Dosage: 1 G, UNK
     Route: 042
     Dates: start: 20141217, end: 20141218
  7. TAZOBAC [Concomitant]
     Active Substance: PIPERACILLIN SODIUM\TAZOBACTAM SODIUM
     Dosage: 4.5 G, UNK
     Route: 042
     Dates: start: 20141217, end: 20141217
  8. PLATELETS [Concomitant]
     Active Substance: HUMAN PLATELET, ALLOGENIC
     Dosage: 1 UNK, UNK
     Route: 042
     Dates: start: 20141220, end: 20141220
  9. PANTOZOL [Concomitant]
     Active Substance: PANTOPRAZOLE SODIUM
     Dosage: 40 MG, UNK
     Route: 048
     Dates: start: 20141105, end: 20150107
  10. ACC                                /00082801/ [Concomitant]
     Dosage: 600 MG, UNK
     Route: 048
     Dates: start: 20141216, end: 20150107
  11. DOLANTIN [Concomitant]
     Active Substance: MEPERIDINE
     Dosage: 0.5 UNK, UNK
     Route: 042
     Dates: start: 20141217, end: 20141217
  12. AMPHOTERICIN [Concomitant]
     Active Substance: AMPHOTERICIN B
     Dosage: UNK
     Route: 048
     Dates: start: 20141105, end: 20150107
  13. BLINATUMOMAB [Suspect]
     Active Substance: BLINATUMOMAB
     Indication: ACUTE LYMPHOCYTIC LEUKAEMIA
     Dosage: 28 MUG, UNK
     Route: 041
     Dates: start: 20141216, end: 20141223
  14. SIMVASTATIN. [Concomitant]
     Active Substance: SIMVASTATIN
     Dosage: 20 MG, UNK
     Route: 048
     Dates: start: 200508, end: 20150107
  15. ALLOPURINOL. [Concomitant]
     Active Substance: ALLOPURINOL
     Dosage: 300 MG, UNK
     Route: 048
     Dates: start: 20141215, end: 20150107
  16. PLAVIX [Concomitant]
     Active Substance: CLOPIDOGREL BISULFATE
     Dosage: 75 MG, UNK
     Route: 048
     Dates: start: 200508, end: 20141224
  17. RANITIC [Concomitant]
     Active Substance: RANITIDINE HYDROCHLORIDE
     Dosage: 1 UNK, UNK
     Route: 042
     Dates: start: 20141216, end: 20141223
  18. TAVEGIL                            /00137201/ [Concomitant]
     Active Substance: CLEMASTINE FUMARATE
     Dosage: 1 UNK, UNK
     Route: 042
     Dates: start: 20141216, end: 20141223
  19. STEROFUNDIN [Concomitant]
     Dosage: 500-3000 ML, UNK
     Route: 042
     Dates: start: 20141215, end: 20150106
  20. LAXOFALK [Concomitant]
     Dosage: UNK
     Route: 048
     Dates: start: 20141214, end: 20150107
  21. URALYT                             /01779901/ [Concomitant]
     Dosage: 1 UNK, UNK
     Route: 048
     Dates: start: 20141215, end: 20150102
  22. KALINOR                            /00031402/ [Concomitant]
     Active Substance: POTASSIUM CITRATE
     Dosage: UNK
     Route: 048
     Dates: start: 20141105, end: 20141217
  23. EUSAPRIM                           /00086101/ [Concomitant]
     Dosage: 960 MG, UNK
     Route: 048
     Dates: start: 20141105, end: 20150107
  24. CYTARABIN [Concomitant]
     Active Substance: CYTARABINE
     Dosage: 40 MG, UNK
     Route: 037
     Dates: start: 20141212, end: 20150105
  25. RED BLOOD CELLS [Concomitant]
     Active Substance: HUMAN RED BLOOD CELL
     Dosage: 2 UNK, UNK
     Route: 042
     Dates: start: 20141221, end: 20141221
  26. CONCOR [Concomitant]
     Active Substance: BISOPROLOL FUMARATE
     Dosage: 1.25 MG, UNK
     Route: 048
     Dates: start: 200508, end: 20150107
  27. AMLODIPIN                          /00972401/ [Concomitant]
     Active Substance: AMLODIPINE BESYLATE
     Dosage: 2.5 MG, UNK
     Route: 048
     Dates: start: 200508, end: 20150107

REACTIONS (2)
  - Asthenia [Not Recovered/Not Resolved]
  - Infection in an immunocompromised host [Fatal]

NARRATIVE: CASE EVENT DATE: 20141223
